FAERS Safety Report 4895356-X (Version None)
Quarter: 2006Q1

REPORT INFORMATION
  Report Type: 
  Country: None (occurrence: None)
  Receive Date: 20060130
  Receipt Date: 20050923
  Transmission Date: 20060701
  Serious: Yes (Hospitalization)
  Sender: FDA-Public Use
  Company Number: FR-MERCK-0509FRA00069

PATIENT
  Age: 56 Year
  Sex: Female
  Weight: 76 kg

DRUGS (2)
  1. ZETIA [Suspect]
     Indication: DYSLIPIDAEMIA
     Route: 048
     Dates: start: 20050201
  2. ATORVASTATIN CALCIUM [Concomitant]
     Indication: DYSLIPIDAEMIA
     Route: 048

REACTIONS (1)
  - ACUTE MYOCARDIAL INFARCTION [None]
